FAERS Safety Report 7889216-X (Version None)
Quarter: 2011Q4

REPORT INFORMATION
  Report Type: 
  Country: None (occurrence: None)
  Receive Date: 20111103
  Receipt Date: 20111025
  Transmission Date: 20120403
  Serious: Yes (Hospitalization, Other)
  Sender: FDA-Public Use
  Company Number: US-MERCK-1110USA03825

PATIENT
  Age: 67 Year
  Sex: Female
  Weight: 90 kg

DRUGS (6)
  1. JANUVIA [Suspect]
     Indication: TYPE 2 DIABETES MELLITUS
     Route: 048
     Dates: end: 20111001
  2. PHENERGAN HCL [Concomitant]
     Route: 065
  3. NABUMETONE [Concomitant]
     Route: 065
  4. PRINIVIL [Concomitant]
     Route: 065
  5. PRINZIDE [Suspect]
     Indication: HYPERTENSION
     Route: 065
     Dates: end: 20111001
  6. OMEPRAZOLE [Concomitant]
     Route: 065

REACTIONS (12)
  - PANCREATITIS ACUTE [None]
  - GALLBLADDER ENLARGEMENT [None]
  - TONSILLAR DISORDER [None]
  - ABDOMINAL SYMPTOM [None]
  - ARTHRITIS [None]
  - SPLENOMEGALY [None]
  - FOOD POISONING [None]
  - HYPERTENSION [None]
  - NAUSEA [None]
  - BREAST DISORDER [None]
  - GASTROOESOPHAGEAL REFLUX DISEASE [None]
  - DIARRHOEA [None]
